FAERS Safety Report 6375747-0 (Version None)
Quarter: 2009Q3

REPORT INFORMATION
  Report Type: 
  Country: None (occurrence: None)
  Receive Date: 20090922
  Receipt Date: 20090922
  Transmission Date: 20100115
  Serious: No
  Sender: FDA-Public Use
  Company Number: None

PATIENT
  Sex: Female
  Weight: 58.9676 kg

DRUGS (2)
  1. METOCLOPRAMIDE [Suspect]
     Indication: BARRETT'S OESOPHAGUS
     Dosage: 10 MG. 1X DAILY
     Dates: start: 20080308, end: 20090915
  2. METOCLOPRAMIDE [Suspect]
     Indication: GASTROOESOPHAGEAL REFLUX DISEASE
     Dosage: 10 MG. 1X DAILY
     Dates: start: 20080308, end: 20090915

REACTIONS (4)
  - ANXIETY [None]
  - DEPRESSION [None]
  - DYSKINESIA [None]
  - GRIMACING [None]
